FAERS Safety Report 24258739 (Version 1)
Quarter: 2024Q3

REPORT INFORMATION
  Report Type: Spontaneous
  Country: US (occurrence: None)
  Receive Date: 20240827
  Receipt Date: 20240827
  Transmission Date: 20241017
  Serious: Yes (Death)
  Sender: Public
  Company Number: None

PATIENT
  Age: 61 Year
  Sex: Male

DRUGS (14)
  1. AUSTEDO [Suspect]
     Active Substance: DEUTETRABENAZINE
     Dates: start: 20240719, end: 20240820
  2. PREZCOBIX [Suspect]
     Active Substance: COBICISTAT\DARUNAVIR ETHANOLATE
  3. TIVICAY [Suspect]
     Active Substance: DOLUTEGRAVIR SODIUM
  4. VEMLIDY [Suspect]
     Active Substance: TENOFOVIR ALAFENAMIDE FUMARATE
     Indication: HIV infection
     Dosage: OTHER QUANTITY : 800/150MG;?FREQUENCY : DAILY;?
     Route: 048
     Dates: end: 20240820
  5. ALBUTEROL SULFATE [Concomitant]
     Active Substance: ALBUTEROL SULFATE
  6. AMITRIPTYLINE [Concomitant]
     Active Substance: AMITRIPTYLINE
  7. DULOXETINE [Concomitant]
     Active Substance: DULOXETINE
  8. FINASTERIDE [Concomitant]
     Active Substance: FINASTERIDE
  9. KETOCONAZOLE [Concomitant]
     Active Substance: KETOCONAZOLE
  10. LEVOTHYROXINE [Concomitant]
     Active Substance: LEVOTHYROXINE\LEVOTHYROXINE SODIUM
     Dosage: OTHER QUANTITY : 0.125MG;?
  11. Nystatin Oral Suspension [Concomitant]
  12. OLANZAPINE [Concomitant]
     Active Substance: OLANZAPINE
  13. PREGABALIN [Concomitant]
     Active Substance: PREGABALIN
  14. ROSUVASTATIN [Concomitant]
     Active Substance: ROSUVASTATIN\ROSUVASTATIN CALCIUM

REACTIONS (1)
  - Death [None]

NARRATIVE: CASE EVENT DATE: 20240820
